FAERS Safety Report 9601334 (Version 1)
Quarter: 2013Q4

REPORT INFORMATION
  Report Type: Spontaneous
  Country: NL (occurrence: NL)
  Receive Date: 20131007
  Receipt Date: 20131007
  Transmission Date: 20140711
  Serious: Yes (Other)
  Sender: FDA-Public Use
  Company Number: PHHY2013NL108045

PATIENT
  Age: 24 Year
  Sex: Female

DRUGS (1)
  1. BROMOCRIPTINE [Suspect]
     Indication: BREAST ENLARGEMENT
     Dosage: 2.5 MG, BID, FOR THE REMAINDER OF THE PREGNANCY

REACTIONS (9)
  - General physical health deterioration [Unknown]
  - Cyanosis [Unknown]
  - Breast ulceration [Unknown]
  - Skin irritation [Unknown]
  - Dyspnoea [Unknown]
  - Orthostatic hypotension [Unknown]
  - Paraesthesia [Unknown]
  - Drug ineffective [Unknown]
  - Maternal exposure during pregnancy [Unknown]
